FAERS Safety Report 24070059 (Version 1)
Quarter: 2024Q3

REPORT INFORMATION
  Report Type: Report from Study
  Country: US (occurrence: US)
  Receive Date: 20240710
  Receipt Date: 20240710
  Transmission Date: 20241016
  Serious: No
  Sender: ROCHE
  Company Number: US-ROCHE-3510219

PATIENT
  Age: 76 Year
  Sex: Female

DRUGS (12)
  1. ALECENSA [Suspect]
     Active Substance: ALECTINIB HYDROCHLORIDE
     Indication: Lung neoplasm malignant
     Dosage: WITH FOOD
     Route: 048
  2. ACETAMINOPHEN [Concomitant]
     Active Substance: ACETAMINOPHEN
     Dosage: 2 TABLET AS NEDDED
     Route: 048
  3. ALECTINIB [Concomitant]
     Active Substance: ALECTINIB
     Dosage: WITH FOOD
     Route: 048
  4. ASCORBIC ACID [Concomitant]
     Active Substance: ASCORBIC ACID
     Route: 048
  5. ASPIRIN [Concomitant]
     Active Substance: ASPIRIN
     Route: 048
  6. CALCIUM\CHOLECALCIFEROL [Concomitant]
     Active Substance: CALCIUM\CHOLECALCIFEROL
     Route: 048
  7. GLUCOSAMINE COMPLEX [CHONDROITIN;CURCUMIN;GINGER;MSM;VIT C;ZINC] [Concomitant]
     Route: 048
  8. VITAMINS [Concomitant]
     Active Substance: VITAMINS
     Route: 048
  9. DOCONEXENT\ICOSAPENT [Concomitant]
     Active Substance: DOCONEXENT\ICOSAPENT
     Route: 048
  10. OXYBUTYNIN [Concomitant]
     Active Substance: OXYBUTYNIN\OXYBUTYNIN CHLORIDE
     Route: 048
  11. SIMVASTATIN [Concomitant]
     Active Substance: SIMVASTATIN
     Dosage: EVERY NIGHT
     Route: 048
  12. OCUVITE PRESERVISION [Concomitant]
     Route: 048

REACTIONS (2)
  - Off label use [Unknown]
  - No adverse event [Unknown]
